FAERS Safety Report 6978878-7 (Version None)
Quarter: 2010Q3

REPORT INFORMATION
  Report Type: 
  Country: None (occurrence: None)
  Receive Date: 20100913
  Receipt Date: 20100907
  Transmission Date: 20110219
  Serious: Yes (Disabling)
  Sender: FDA-Public Use
  Company Number: JP-BRACCO-003645

PATIENT
  Sex: Female

DRUGS (4)
  1. IOPAMIDOL [Suspect]
     Indication: CEREBROVASCULAR ARTERIOVENOUS MALFORMATION
     Route: 013
     Dates: start: 20100607, end: 20100607
  2. IOPAMIDOL [Suspect]
     Indication: ANGIOGRAM
     Route: 013
     Dates: start: 20100607, end: 20100607
  3. EXCEGRAN [Concomitant]
     Indication: EPILEPSY
     Route: 048
     Dates: start: 20070214
  4. EBRANTIL [Concomitant]
     Indication: URINARY RETENTION
     Route: 048
     Dates: start: 20070201

REACTIONS (7)
  - ABNORMAL BEHAVIOUR [None]
  - CEREBRAL INFARCTION [None]
  - CRYING [None]
  - DEPRESSED LEVEL OF CONSCIOUSNESS [None]
  - MOBILITY DECREASED [None]
  - MOVEMENT DISORDER [None]
  - RESTLESSNESS [None]
